FAERS Safety Report 18970558 (Version 2)
Quarter: 2021Q1

REPORT INFORMATION
  Report Type: Spontaneous
  Country: US (occurrence: US)
  Receive Date: 20210305
  Receipt Date: 20210317
  Transmission Date: 20210420
  Serious: Yes (Death, Life-Threatening, Other)
  Sender: FDA-Public Use
  Company Number: US-AUROBINDO-AUR-APL-2021-008508

PATIENT
  Age: 44 Year
  Sex: Male

DRUGS (4)
  1. FLUCONAZOLE. [Suspect]
     Active Substance: FLUCONAZOLE
     Dosage: 1600 MILLIGRAM, ONCE A DAY
     Route: 065
  2. DEXAMETHASONE. [Concomitant]
     Active Substance: DEXAMETHASONE
     Indication: DISSEMINATED COCCIDIOIDOMYCOSIS
     Dosage: 3 MILLIGRAM, ONCE A DAY
     Route: 042
  3. FLUCONAZOLE. [Suspect]
     Active Substance: FLUCONAZOLE
     Indication: DISSEMINATED COCCIDIOIDOMYCOSIS
     Dosage: 800 MILLIGRAM, ONCE A DAY
     Route: 065
  4. DEXAMETHASONE. [Concomitant]
     Active Substance: DEXAMETHASONE
     Indication: CENTRAL NERVOUS SYSTEM VASCULITIS
     Dosage: 6 MILLIGRAM, TWO TIMES A DAY
     Route: 042

REACTIONS (2)
  - Drug ineffective [Fatal]
  - Thrombocytopenia [Recovering/Resolving]
